FAERS Safety Report 6039673-9 (Version None)
Quarter: 2009Q1

REPORT INFORMATION
  Report Type: 
  Country: None (occurrence: None)
  Receive Date: 20090116
  Receipt Date: 20090114
  Transmission Date: 20090719
  Serious: Yes (Hospitalization)
  Sender: FDA-Public Use
  Company Number: IT-BRISTOL-MYERS SQUIBB COMPANY-14446165

PATIENT
  Age: 79 Year
  Sex: Female

DRUGS (6)
  1. COUMADIN [Suspect]
     Indication: ATRIAL FIBRILLATION
     Route: 048
     Dates: start: 20080601, end: 20080813
  2. ALENDRONATE SODIUM [Concomitant]
     Route: 048
     Dates: start: 20030101, end: 20080818
  3. LUVION [Concomitant]
     Route: 048
     Dates: start: 20030101, end: 20080818
  4. MONOKET [Concomitant]
     Route: 048
     Dates: start: 20030101, end: 20080818
  5. TILDIEM RETARD [Concomitant]
     Route: 048
     Dates: start: 20030101, end: 20080818
  6. ENAPREN [Concomitant]
     Route: 048
     Dates: start: 20030101, end: 20080818

REACTIONS (2)
  - COAGULOPATHY [None]
  - INTERNATIONAL NORMALISED RATIO INCREASED [None]
